FAERS Safety Report 24050334 (Version 2)
Quarter: 2024Q3

REPORT INFORMATION
  Report Type: Spontaneous
  Country: US (occurrence: US)
  Receive Date: 20240704
  Receipt Date: 20240805
  Transmission Date: 20241016
  Serious: Yes (Hospitalization)
  Sender: JOHNSON AND JOHNSON
  Company Number: US-JNJFOC-20240677618

PATIENT
  Age: 21 Year
  Sex: Female

DRUGS (9)
  1. OPSUMIT [Suspect]
     Active Substance: MACITENTAN
     Indication: Product used for unknown indication
     Route: 048
     Dates: end: 20240713
  2. MACITENTAN\TADALAFIL [Suspect]
     Active Substance: MACITENTAN\TADALAFIL
     Indication: Product used for unknown indication
     Route: 048
  3. TREPROSTINIL SODIUM [Suspect]
     Active Substance: TREPROSTINIL SODIUM
     Indication: Pulmonary arterial hypertension
     Route: 041
     Dates: start: 202406
  4. TREPROSTINIL SODIUM [Suspect]
     Active Substance: TREPROSTINIL SODIUM
     Route: 041
     Dates: start: 202406
  5. TREPROSTINIL SODIUM [Suspect]
     Active Substance: TREPROSTINIL SODIUM
     Route: 041
     Dates: start: 20240702
  6. TREPROSTINIL SODIUM [Suspect]
     Active Substance: TREPROSTINIL SODIUM
     Route: 041
     Dates: start: 202406
  7. PROCHLORPERAZINE EDISYLATE [Suspect]
     Active Substance: PROCHLORPERAZINE EDISYLATE
     Indication: Nausea
     Route: 065
  8. ZOFRAN [Suspect]
     Active Substance: ONDANSETRON HYDROCHLORIDE
     Indication: Nausea
     Route: 065
  9. SILDENAFIL CITRATE [Concomitant]
     Active Substance: SILDENAFIL CITRATE
     Dates: end: 20240713

REACTIONS (11)
  - Hospitalisation [Not Recovered/Not Resolved]
  - Nausea [Recovering/Resolving]
  - Vomiting [Recovering/Resolving]
  - Weight decreased [Recovering/Resolving]
  - Decreased appetite [Recovering/Resolving]
  - Arthralgia [Not Recovered/Not Resolved]
  - Retching [Unknown]
  - Hypotension [Unknown]
  - Skin irritation [Recovering/Resolving]
  - Rash [Recovered/Resolved]
  - Pruritus [Recovering/Resolving]

NARRATIVE: CASE EVENT DATE: 20240101
